FAERS Safety Report 25606283 (Version 1)
Quarter: 2025Q3

REPORT INFORMATION
  Report Type: Spontaneous
  Country: US (occurrence: None)
  Receive Date: 20250724
  Receipt Date: 20250724
  Transmission Date: 20251020
  Serious: Yes (Other)
  Sender: FDA-CTU
  Company Number: None

PATIENT
  Age: 27 Year
  Weight: 118.8 kg

DRUGS (4)
  1. JARDIANCE [Suspect]
     Active Substance: EMPAGLIFLOZIN
     Indication: Microalbuminuria
     Dosage: FREQUENCY : DAILY;?
     Route: 048
     Dates: start: 20250320, end: 20250327
  2. MOUNJARO [Concomitant]
     Active Substance: TIRZEPATIDE
  3. LOSARTAN [Concomitant]
     Active Substance: LOSARTAN
  4. NUVARING [Concomitant]
     Active Substance: ETHINYL ESTRADIOL\ETONOGESTREL

REACTIONS (3)
  - Rash erythematous [None]
  - Feeling hot [None]
  - Throat tightness [None]

NARRATIVE: CASE EVENT DATE: 20250320
